FAERS Safety Report 16201429 (Version 2)
Quarter: 2019Q2

REPORT INFORMATION
  Report Type: Report from Study
  Country: US (occurrence: US)
  Receive Date: 20190416
  Receipt Date: 20190426
  Transmission Date: 20190711
  Serious: Yes (Hospitalization, Other)
  Sender: FDA-Public Use
  Company Number: US-BRISTOL-MYERS SQUIBB COMPANY-BMS-2019-037448

PATIENT
  Age: 57 Year
  Sex: Female
  Weight: 61.7 kg

DRUGS (4)
  1. DECITABINE. [Suspect]
     Active Substance: DECITABINE
     Indication: MYELODYSPLASTIC SYNDROME
     Dosage: 20 MILLIGRAM/SQ. METER
     Route: 042
     Dates: start: 20190211, end: 20190215
  2. CDX-1401 [Suspect]
     Active Substance: RASDEGAFUSP ALFA
     Indication: MYELODYSPLASTIC SYNDROME
     Dosage: 1 MILLIGRAM
     Route: 003
     Dates: start: 20190129, end: 20190225
  3. POLY ICLC [Suspect]
     Active Substance: HILTONOL
     Indication: MYELODYSPLASTIC SYNDROME
     Dosage: 1.8 MILLIGRAM
     Route: 058
     Dates: start: 20190129, end: 20190225
  4. NIVOLUMAB [Suspect]
     Active Substance: NIVOLUMAB
     Indication: MYELODYSPLASTIC SYNDROME
     Dosage: 3 MILLIGRAM/KILOGRAM, Q2WK
     Route: 042
     Dates: start: 20190211, end: 20190225

REACTIONS (1)
  - Sepsis [Not Recovered/Not Resolved]

NARRATIVE: CASE EVENT DATE: 20190404
